FAERS Safety Report 8267681-6 (Version None)
Quarter: 2012Q2

REPORT INFORMATION
  Report Type: 
  Country: None (occurrence: None)
  Receive Date: 20120409
  Receipt Date: 20120327
  Transmission Date: 20120825
  Serious: No
  Sender: FDA-Public Use
  Company Number: US-JNJFOC-20120315078

PATIENT
  Age: 57 Year
  Sex: Female

DRUGS (5)
  1. DEPAKOTE [Concomitant]
     Indication: SCHIZOAFFECTIVE DISORDER
     Route: 048
  2. CYMBALTA [Concomitant]
     Indication: SCHIZOAFFECTIVE DISORDER
     Route: 048
  3. INVEGA SUSTENNA [Suspect]
     Indication: SCHIZOAFFECTIVE DISORDER
     Route: 030
  4. AN UNKNOWN MEDICATION [Concomitant]
     Indication: SCHIZOAFFECTIVE DISORDER
     Route: 048
  5. INVEGA SUSTENNA [Suspect]
     Route: 030
     Dates: start: 20111201, end: 20120101

REACTIONS (2)
  - FREEZING PHENOMENON [None]
  - PSYCHOMOTOR RETARDATION [None]
